FAERS Safety Report 9983450 (Version 1)
Quarter: 2014Q1

REPORT INFORMATION
  Report Type: Spontaneous
  Country: GB (occurrence: GB)
  Receive Date: 20140307
  Receipt Date: 20140307
  Transmission Date: 20141002
  Serious: Yes (Other)
  Sender: FDA-Public Use
  Company Number: GB-NOVOPROD-401424

PATIENT
  Age: 57 Year
  Sex: Female
  Weight: 82.5 kg

DRUGS (11)
  1. VICTOZA [Suspect]
     Indication: DIABETES MELLITUS MANAGEMENT
     Dosage: UNK (1.2 MG)
     Route: 058
     Dates: start: 20130526, end: 20140210
  2. VICTOZA [Suspect]
     Indication: WEIGHT CONTROL
  3. VICTOZA [Suspect]
     Indication: OFF LABEL USE
  4. AMLODIPINE [Concomitant]
     Dosage: 5 MG, QD
     Route: 065
  5. ASPIRIN [Concomitant]
     Dosage: 75 MG, QD
  6. ATORVASTATIN [Concomitant]
     Dosage: 40 MG, QD
     Route: 065
     Dates: end: 20140210
  7. EZETIMIBE [Concomitant]
     Dosage: 10 MG, QD
     Route: 065
     Dates: end: 20140210
  8. HUMALOG [Concomitant]
     Dosage: UNK (TWICE DAILY)
     Route: 065
  9. LEVEMIR [Concomitant]
     Dosage: UNK (TWICE DAILY)
     Route: 065
  10. LISINOPRIL [Concomitant]
     Dosage: 20 MG, QD
     Route: 065
  11. METFORMIN [Concomitant]
     Dosage: 850 MG, TID
     Route: 065

REACTIONS (3)
  - Hepatic enzyme abnormal [Recovering/Resolving]
  - Liver function test abnormal [Recovering/Resolving]
  - Off label use [Unknown]
